FAERS Safety Report 7480941-1 (Version None)
Quarter: 2011Q2

REPORT INFORMATION
  Report Type: 
  Country: None (occurrence: None)
  Receive Date: 20110506
  Receipt Date: 20110429
  Transmission Date: 20111010
  Serious: Yes (Other)
  Sender: FDA-Public Use
  Company Number: 1000020287

PATIENT
  Age: 70 Year
  Sex: Male
  Weight: 42.2 kg

DRUGS (4)
  1. ESCITALOPRAM [Suspect]
     Indication: SEASONAL AFFECTIVE DISORDER
     Dosage: 5 MG, ORAL
     Route: 048
     Dates: start: 20101101
  2. ESCITALOPRAM [Suspect]
     Indication: DEPRESSION
     Dosage: 5 MG, ORAL
     Route: 048
     Dates: start: 20101101
  3. ULTRAPREVENTIVO X (MULTIVITAMIN) [Concomitant]
  4. MIRTAZEPINA RATIOPHARMA (MIRTAZAPINE) [Concomitant]

REACTIONS (7)
  - NIGHT BLINDNESS [None]
  - DYSGEUSIA [None]
  - TINNITUS [None]
  - CONDITION AGGRAVATED [None]
  - WEIGHT DECREASED [None]
  - INSOMNIA [None]
  - DEAFNESS [None]
